FAERS Safety Report 9421786 (Version 1)
Quarter: 2013Q3

REPORT INFORMATION
  Report Type: Spontaneous
  Country: US (occurrence: None)
  Receive Date: 20130723
  Receipt Date: 20130723
  Transmission Date: 20140515
  Serious: No
  Sender: FDA-Public Use
  Company Number: None

PATIENT
  Age: 60 Year
  Sex: Female
  Weight: 47.8 kg

DRUGS (10)
  1. ALFA 2 INTERFERON 2 B [Suspect]
     Dates: start: 20130705
  2. ADVAIR [Concomitant]
  3. ALEVE [Concomitant]
  4. IMODIUM [Concomitant]
  5. METOPROCLAMIDE [Concomitant]
  6. ONDANSETRAN [Concomitant]
  7. ROBAXACET [Concomitant]
  8. SIERRASIL [Concomitant]
  9. TYLENOL [Concomitant]
  10. VITAMIN B12 [Concomitant]

REACTIONS (1)
  - Neutrophil count decreased [None]
